FAERS Safety Report 25804479 (Version 2)
Quarter: 2025Q4

REPORT INFORMATION
  Report Type: Spontaneous
  Country: BR (occurrence: BR)
  Receive Date: 20250915
  Receipt Date: 20251002
  Transmission Date: 20260117
  Serious: Yes (Hospitalization, Other)
  Sender: NOVARTIS
  Company Number: BR-002147023-NVSC2025BR141244

PATIENT
  Age: 55 Year
  Sex: Female
  Weight: 69.8 kg

DRUGS (4)
  1. KISQALI [Suspect]
     Active Substance: RIBOCICLIB SUCCINATE
     Indication: Breast cancer
     Dosage: 200 MG, TID
     Route: 048
     Dates: start: 20250613
  2. EXEMESTANE [Concomitant]
     Active Substance: EXEMESTANE
     Indication: Product used for unknown indication
     Dosage: 1 DOSAGE FORM, QD
     Route: 065
  3. DESVENLAFAXINE [Concomitant]
     Active Substance: DESVENLAFAXINE
     Indication: Product used for unknown indication
     Dosage: 1 DOSAGE FORM, QD
     Route: 065
  4. CLONAZEPAM [Concomitant]
     Active Substance: CLONAZEPAM
     Indication: Product used for unknown indication
     Dosage: UNK (SN)
     Route: 065

REACTIONS (5)
  - Respiratory distress [Recovering/Resolving]
  - Malaise [Recovering/Resolving]
  - Dyspnoea [Recovering/Resolving]
  - Myocarditis [Recovering/Resolving]
  - Troponin increased [Recovered/Resolved]

NARRATIVE: CASE EVENT DATE: 20250901
